FAERS Safety Report 6202697-2 (Version None)
Quarter: 2009Q2

REPORT INFORMATION
  Report Type: 
  Country: None (occurrence: None)
  Receive Date: 20090526
  Receipt Date: 20090515
  Transmission Date: 20091009
  Serious: Yes (Other)
  Sender: FDA-Public Use
  Company Number: PHHY2009NZ19080

PATIENT
  Sex: Male

DRUGS (1)
  1. CLOZARIL [Suspect]

REACTIONS (2)
  - RESPIRATORY RATE INCREASED [None]
  - SINUS TACHYCARDIA [None]
